FAERS Safety Report 20947821 (Version 1)
Quarter: 2022Q2

REPORT INFORMATION
  Report Type: Spontaneous
  Country: US (occurrence: US)
  Receive Date: 20220611
  Receipt Date: 20220611
  Transmission Date: 20220720
  Serious: No
  Sender: FDA-Public Use
  Company Number: US-TEVA-2022-US-2039444

PATIENT
  Age: 33 Year
  Sex: Female

DRUGS (1)
  1. CINQAIR [Suspect]
     Active Substance: RESLIZUMAB
     Indication: Asthma
     Dosage: 385 MILLIGRAM DAILY; STRENGTH: 100 MG / 10 ML,EVERY 4 WEEKS
     Route: 042
     Dates: start: 20220422, end: 20220422

REACTIONS (2)
  - Drug ineffective [Unknown]
  - Insurance issue [Unknown]

NARRATIVE: CASE EVENT DATE: 20220422
